FAERS Safety Report 14754148 (Version 1)
Quarter: 2018Q2

REPORT INFORMATION
  Report Type: Report from Study
  Country: None (occurrence: GR)
  Receive Date: 20180412
  Receipt Date: 20180412
  Transmission Date: 20180711
  Serious: Yes (Other)
  Sender: FDA-Public Use
  Company Number: GR-BAUSCH-BL-2018-009522

PATIENT
  Age: 44 Year
  Sex: Female
  Weight: 59 kg

DRUGS (7)
  1. CYCLOPHOSPHAMIDE. [Suspect]
     Active Substance: CYCLOPHOSPHAMIDE
     Indication: PLASMA CELL MYELOMA
     Dosage: 21 DAYS
     Route: 042
     Dates: start: 20161025, end: 20161216
  2. VELCADE [Suspect]
     Active Substance: BORTEZOMIB
     Indication: PLASMA CELL MYELOMA
     Dosage: DOSAGE FORM: LYOPHILIZED POWDER?ON DAY 1, 4, 8 AND 11 WITH 1 WEEK OFF OF A 21 DAY CYCLE
     Route: 058
     Dates: start: 20161025, end: 20161216
  3. CYCLOPHOSPHAMIDE. [Suspect]
     Active Substance: CYCLOPHOSPHAMIDE
     Dosage: 21 DAYS
     Route: 042
     Dates: start: 20170104
  4. VELCADE [Suspect]
     Active Substance: BORTEZOMIB
     Dosage: DOSAGE FORM: LYOPHILIZED POWDER
     Route: 058
     Dates: start: 20170104
  5. DEXAMETHASONE. [Suspect]
     Active Substance: DEXAMETHASONE
     Dosage: DOSAGE FORM: UNSPECIFIED
     Route: 048
     Dates: start: 20170104
  6. DEXAMETHASONE. [Suspect]
     Active Substance: DEXAMETHASONE
     Indication: PLASMA CELL MYELOMA
     Dosage: ON DAY 1,2, 4, 5, 8, 9,11 AND 12
     Route: 048
     Dates: start: 20161025, end: 20161216
  7. REVLIMID [Concomitant]
     Active Substance: LENALIDOMIDE
     Indication: PLASMA CELL MYELOMA
     Dosage: DOSAGE FORM: UNSPECIFIED
     Route: 048
     Dates: start: 20171023

REACTIONS (7)
  - Haemorrhoids [Recovering/Resolving]
  - Colitis [Not Recovered/Not Resolved]
  - Eyelid oedema [Recovered/Resolved]
  - Haematochezia [Recovered/Resolved]
  - Oedema peripheral [Recovered/Resolved]
  - Skin ulcer [Recovered/Resolved]
  - Restrictive cardiomyopathy [Not Recovered/Not Resolved]

NARRATIVE: CASE EVENT DATE: 20161125
